FAERS Safety Report 21041191 (Version 2)
Quarter: 2022Q4

REPORT INFORMATION
  Report Type: Spontaneous
  Country: US (occurrence: US)
  Receive Date: 20220705
  Receipt Date: 20221122
  Transmission Date: 20230113
  Serious: Yes (Hospitalization, Other)
  Sender: FDA-Public Use
  Company Number: US-JNJFOC-20220634183

PATIENT
  Age: 6 Decade
  Sex: Female
  Weight: 96.702 kg

DRUGS (13)
  1. XARELTO [Suspect]
     Active Substance: RIVAROXABAN
     Indication: Product used for unknown indication
     Route: 048
  2. REMODULIN [Suspect]
     Active Substance: TREPROSTINIL
     Indication: Pulmonary arterial hypertension
     Route: 058
     Dates: start: 20220218
  3. REMODULIN [Suspect]
     Active Substance: TREPROSTINIL
     Indication: Pulmonary arterial hypertension
     Route: 058
  4. REMODULIN [Suspect]
     Active Substance: TREPROSTINIL
     Route: 058
  5. REMODULIN [Suspect]
     Active Substance: TREPROSTINIL
     Dosage: PREFILLED WITH REGIMEN 2.6ML PER CASSETTE AT PUMP RATE 20 MCL/HOUR), CONTINUING
     Route: 058
     Dates: start: 20220921
  6. REMODULIN [Suspect]
     Active Substance: TREPROSTINIL
     Dosage: 0.0125 UG/KG (PREFILLED WITH 2.6ML PER CASSETTE AT PUMP RATE 20 MCL/HOUR)
     Route: 058
     Dates: start: 2022
  7. REMODULIN [Suspect]
     Active Substance: TREPROSTINIL
     Dosage: PATIENT FILLED WITH 2.2 ML PER CASSETTE AT PUMP RATE OF 24 MCL/HR
     Route: 058
     Dates: start: 202210
  8. REMODULIN [Suspect]
     Active Substance: TREPROSTINIL
     Dosage: 2.5ML PER CASSETTE AT A PUMP RATE OF 28 MCL/HOUR)
     Route: 058
     Dates: start: 202210
  9. REMODULIN [Suspect]
     Active Substance: TREPROSTINIL
     Dosage: SELF FILLED WITH 1.7 ML CASSETTE AT A PUMP RATE OF 16 MCL/HOUR
     Route: 058
     Dates: start: 202210
  10. ADEMPAS [Suspect]
     Active Substance: RIOCIGUAT
     Indication: Product used for unknown indication
     Route: 065
  11. SILDENAFIL CITRATE [Suspect]
     Active Substance: SILDENAFIL CITRATE
     Indication: Product used for unknown indication
     Route: 065
  12. UPTRAVI [Concomitant]
     Active Substance: SELEXIPAG
     Indication: Product used for unknown indication
  13. AMBRISENTAN [Concomitant]
     Active Substance: AMBRISENTAN
     Indication: Product used for unknown indication

REACTIONS (19)
  - Dyspnoea at rest [Not Recovered/Not Resolved]
  - Gastroenteritis viral [Unknown]
  - Infusion site pain [Recovering/Resolving]
  - Infusion site erythema [Unknown]
  - Fatigue [Unknown]
  - Hypersomnia [Unknown]
  - Thinking abnormal [Recovering/Resolving]
  - Asthenia [Recovering/Resolving]
  - Gait inability [Recovering/Resolving]
  - Hypotension [Unknown]
  - Infusion site pruritus [Unknown]
  - Oxygen saturation decreased [Recovering/Resolving]
  - Oedema peripheral [Unknown]
  - Dizziness [Unknown]
  - Muscle spasms [Unknown]
  - Asthenia [Unknown]
  - Pyrexia [Unknown]
  - Vomiting [Recovered/Resolved]
  - Diarrhoea [Not Recovered/Not Resolved]

NARRATIVE: CASE EVENT DATE: 20220101
